FAERS Safety Report 5714960-X (Version None)
Quarter: 2008Q2

REPORT INFORMATION
  Report Type: 
  Country: None (occurrence: None)
  Receive Date: 20080423
  Receipt Date: 20080415
  Transmission Date: 20081010
  Serious: Yes (Hospitalization)
  Sender: FDA-Public Use
  Company Number: FR-JNJFOC-20080200682

PATIENT
  Sex: Male

DRUGS (4)
  1. HALDOL DECANOAS [Suspect]
     Indication: DRUG USE FOR UNKNOWN INDICATION
  2. LORAZEPAM [Concomitant]
     Indication: DRUG USE FOR UNKNOWN INDICATION
  3. DEPAKOTE [Concomitant]
     Indication: DRUG USE FOR UNKNOWN INDICATION
  4. LEPTICUR [Concomitant]

REACTIONS (5)
  - ADVERSE EVENT [None]
  - HEADACHE [None]
  - HOSPITALISATION [None]
  - TORSADE DE POINTES [None]
  - VERTIGO [None]
